FAERS Safety Report 8369565-1 (Version None)
Quarter: 2012Q2

REPORT INFORMATION
  Report Type: 
  Country: None (occurrence: None)
  Receive Date: 20120518
  Receipt Date: 20120509
  Transmission Date: 20120825
  Serious: Yes (Hospitalization)
  Sender: FDA-Public Use
  Company Number: JP-SANOFI-AVENTIS-2012SA033992

PATIENT
  Age: 77 Year
  Sex: Female

DRUGS (4)
  1. ANTIHYPERTENSIVES [Concomitant]
  2. ASPIRIN [Concomitant]
  3. GLIMEPIRIDE [Suspect]
     Route: 065
  4. VOGLIBOSE [Concomitant]

REACTIONS (6)
  - DEPRESSED LEVEL OF CONSCIOUSNESS [None]
  - COMA [None]
  - HYPOGLYCAEMIC ENCEPHALOPATHY [None]
  - HEMIPLEGIA [None]
  - MOBILITY DECREASED [None]
  - HYPOGLYCAEMIA [None]
